FAERS Safety Report 4411515-4 (Version None)
Quarter: 2004Q2

REPORT INFORMATION
  Report Type: 
  Country: None (occurrence: None)
  Receive Date: 20040630
  Receipt Date: 20040316
  Transmission Date: 20050107
  Serious: No
  Sender: FDA-Public Use
  Company Number: 04P-163-0253736-00

PATIENT
  Age: 67 Year
  Sex: Female
  Weight: 59.8748 kg

DRUGS (10)
  1. HUMIRA [Suspect]
     Indication: RHEUMATOID ARTHRITIS
     Dosage: 40 MG, 1 IN 2 WK, SUBCUTANEOUS
     Route: 058
     Dates: start: 20030101
  2. CELECOXIB [Concomitant]
  3. ASPIRIN [Concomitant]
  4. CONJUGATED ESTROGEN [Concomitant]
  5. TERBINAFINE HCL [Concomitant]
  6. HYZAAR [Concomitant]
  7. ULTRACET [Concomitant]
  8. GLUCOSAMINE [Concomitant]
  9. CALCIUM CARBONATE [Concomitant]
  10. MULTIVITAMIN [Concomitant]

REACTIONS (2)
  - BREAST MASS [None]
  - INJECTION SITE HAEMORRHAGE [None]
